FAERS Safety Report 25519745 (Version 2)
Quarter: 2025Q3

REPORT INFORMATION
  Report Type: Spontaneous
  Country: US (occurrence: US)
  Receive Date: 20250704
  Receipt Date: 20250806
  Transmission Date: 20251021
  Serious: No
  Sender: PFIZER
  Company Number: US-PFIZER INC-PV202500077966

PATIENT
  Age: 72 Year
  Sex: Female

DRUGS (6)
  1. TRAZIMERA [Suspect]
     Active Substance: TRASTUZUMAB-QYYP
     Indication: Breast cancer female
     Dates: start: 20240806
  2. PERJETA [Concomitant]
     Active Substance: PERTUZUMAB
  3. TAXOTERE [Concomitant]
     Active Substance: DOCETAXEL
  4. DIPHENHYDRAMINE [Concomitant]
     Active Substance: DIPHENHYDRAMINE
  5. DEXAMETHASONE [Concomitant]
     Active Substance: DEXAMETHASONE
  6. PALONOSETRON [Concomitant]
     Active Substance: PALONOSETRON

REACTIONS (8)
  - Insomnia [Not Recovered/Not Resolved]
  - Pain [Not Recovered/Not Resolved]
  - Pruritus [Not Recovered/Not Resolved]
  - Skin ulcer [Not Recovered/Not Resolved]
  - Skin disorder [Not Recovered/Not Resolved]
  - Scar [Not Recovered/Not Resolved]
  - Pustule [Not Recovered/Not Resolved]
  - Skin mass [Not Recovered/Not Resolved]

NARRATIVE: CASE EVENT DATE: 20240101
